FAERS Safety Report 4530029-4 (Version None)
Quarter: 2004Q4

REPORT INFORMATION
  Report Type: 
  Country: None (occurrence: None)
  Receive Date: 20041215
  Receipt Date: 20041203
  Transmission Date: 20050328
  Serious: Yes (Hospitalization)
  Sender: FDA-Public Use
  Company Number: 2000087

PATIENT
  Age: 26 Year
  Sex: Female

DRUGS (5)
  1. KEPPRA [Suspect]
     Indication: PARTIAL SEIZURES
     Dosage: 1500 MG PO
     Route: 048
     Dates: start: 20000425, end: 20040530
  2. TEGRETOL [Suspect]
  3. DEPAKOTE [Concomitant]
  4. TEGRETOL-XR [Concomitant]
  5. VALIUM [Concomitant]

REACTIONS (11)
  - ASTHENIA [None]
  - CONDITION AGGRAVATED [None]
  - DYSPHAGIA [None]
  - HYPOTENSION [None]
  - LABORATORY TEST ABNORMAL [None]
  - LETHARGY [None]
  - REFUSAL OF TREATMENT BY RELATIVE [None]
  - SIMPLE PARTIAL SEIZURES [None]
  - SOMNOLENCE [None]
  - STATUS EPILEPTICUS [None]
  - THERAPY NON-RESPONDER [None]
